FAERS Safety Report 6976631-1 (Version None)
Quarter: 2010Q3

REPORT INFORMATION
  Report Type: 
  Country: None (occurrence: None)
  Receive Date: 20100910
  Receipt Date: 20100806
  Transmission Date: 20110219
  Serious: Yes (Other)
  Sender: FDA-Public Use
  Company Number: KR-PFIZER INC-2010066440

PATIENT
  Sex: Female
  Weight: 47.9 kg

DRUGS (2)
  1. VORICONAZOLE [Suspect]
     Indication: FUNGAL INFECTION
     Dosage: 300 MG, 2X/DAY
     Route: 042
     Dates: start: 20071123, end: 20071123
  2. VORICONAZOLE [Suspect]
     Dosage: 200 MG, 2X/DAY
     Route: 042
     Dates: start: 20071124, end: 20071216

REACTIONS (1)
  - SEPTIC SHOCK [None]
